FAERS Safety Report 5655379-X (Version None)
Quarter: 2008Q1

REPORT INFORMATION
  Report Type: 
  Country: None (occurrence: None)
  Receive Date: 20080307
  Receipt Date: 20080306
  Transmission Date: 20080703
  Serious: Yes (Life-Threatening, Hospitalization)
  Sender: FDA-Public Use
  Company Number: IT-MERCK-0802ITA00028

PATIENT
  Age: 92 Year
  Sex: Female

DRUGS (8)
  1. COZAAR [Suspect]
     Indication: HYPERTENSION
     Route: 048
     Dates: start: 20071029, end: 20080126
  2. ALDACTONE [Suspect]
     Indication: HYPERTENSION
     Route: 048
     Dates: start: 20071029, end: 20080126
  3. LANSOPRAZOLE [Concomitant]
     Indication: HYPERTENSION
     Route: 048
  4. DILATREND [Suspect]
     Indication: CARDIAC FAILURE
     Route: 048
     Dates: start: 20071029, end: 20080126
  5. POTASSIUM (UNSPECIFIED) [Suspect]
     Indication: HYPOKALAEMIA
     Route: 048
     Dates: start: 20071029, end: 20080126
  6. NITROGLYCERIN [Concomitant]
     Route: 065
  7. CARDIRENE [Concomitant]
     Route: 065
  8. LASIX [Concomitant]
     Route: 065

REACTIONS (2)
  - ATRIOVENTRICULAR BLOCK [None]
  - HYPERKALAEMIA [None]
